FAERS Safety Report 4703661-2 (Version None)
Quarter: 2005Q2

REPORT INFORMATION
  Report Type: 
  Country: None (occurrence: None)
  Receive Date: 20050630
  Receipt Date: 20050606
  Transmission Date: 20051028
  Serious: Yes (Hospitalization)
  Sender: FDA-Public Use
  Company Number: JP-NOVOPROD-244687

PATIENT
  Age: 71 Year
  Sex: Female

DRUGS (1)
  1. PENFILL R CHU [Suspect]
     Indication: INSULIN-REQUIRING TYPE II DIABETES MELLITUS
     Dosage: 28 IU, QD
     Route: 058
     Dates: start: 20050311, end: 20050528

REACTIONS (1)
  - TOXIC SKIN ERUPTION [None]
